APPROVED DRUG PRODUCT: CLOBAZAM
Active Ingredient: CLOBAZAM
Strength: 20MG
Dosage Form/Route: TABLET;ORAL
Application: A211959 | Product #002
Applicant: CHARTWELL RX SCIENCES LLC
Approved: Dec 9, 2020 | RLD: No | RS: No | Type: DISCN